FAERS Safety Report 7893284-9 (Version None)
Quarter: 2011Q4

REPORT INFORMATION
  Report Type: 
  Country: None (occurrence: None)
  Receive Date: 20111104
  Receipt Date: 20111026
  Transmission Date: 20120403
  Serious: Yes (Death)
  Sender: FDA-Public Use
  Company Number: US-JNJFOC-20111008481

PATIENT
  Age: 20 Year

DRUGS (8)
  1. ALPRAZOLAM [Interacting]
     Indication: PRODUCT USED FOR UNKNOWN INDICATION
     Route: 065
  2. SERTRALINE HYDROCHLORIDE [Interacting]
     Indication: PRODUCT USED FOR UNKNOWN INDICATION
     Route: 065
  3. UNKNOWN MEDICATION [Interacting]
     Route: 065
  4. OXYCODONE HCL [Interacting]
     Indication: PRODUCT USED FOR UNKNOWN INDICATION
     Route: 065
  5. HYDROMORPHONE HCL [Interacting]
     Indication: PAIN
     Route: 065
  6. UNKNOWN MEDICATION [Interacting]
     Indication: PRODUCT USED FOR UNKNOWN INDICATION
     Route: 065
  7. SEDATIVES [Interacting]
     Indication: ANXIETY
     Route: 065
  8. FENTANYL [Suspect]
     Indication: PRODUCT USED FOR UNKNOWN INDICATION
     Route: 062

REACTIONS (4)
  - TOXICITY TO VARIOUS AGENTS [None]
  - DRUG INTERACTION [None]
  - WRONG TECHNIQUE IN DRUG USAGE PROCESS [None]
  - RESPIRATORY DEPRESSION [None]
